FAERS Safety Report 8255498-8 (Version None)
Quarter: 2012Q1

REPORT INFORMATION
  Report Type: 
  Country: None (occurrence: None)
  Receive Date: 20120322
  Receipt Date: 20111130
  Transmission Date: 20120608
  Serious: Yes (Other)
  Sender: FDA-Public Use
  Company Number: UTC-012964

PATIENT
  Age: 50 Year
  Sex: Female
  Weight: 136.4 kg

DRUGS (5)
  1. ADCIRCA [Concomitant]
  2. TYVASO [Suspect]
     Indication: PULMONARY ARTERIAL HYPERTENSION
     Dosage: 12-72 MICROGRAMS (4 IN 1 D) INHALATION
     Route: 055
     Dates: start: 20110512
  3. LETAIRIS [Concomitant]
  4. TRACLEER [Concomitant]
  5. DIURETICS (DIURETICS) [Concomitant]

REACTIONS (2)
  - CEREBROVASCULAR ACCIDENT [None]
  - CONFUSIONAL STATE [None]
